FAERS Safety Report 25223620 (Version 1)
Quarter: 2025Q2

REPORT INFORMATION
  Report Type: Spontaneous
  Country: US (occurrence: US)
  Receive Date: 20250422
  Receipt Date: 20250422
  Transmission Date: 20250717
  Serious: No
  Sender: GLAXOSMITHKLINE
  Company Number: US-GSK-US2025041701

PATIENT
  Age: 45 Year
  Sex: Female

DRUGS (2)
  1. BENLYSTA [Suspect]
     Active Substance: BELIMUMAB
     Indication: Undifferentiated connective tissue disease
     Dates: start: 20250406
  2. BENLYSTA [Suspect]
     Active Substance: BELIMUMAB
     Indication: Sjogren^s syndrome

REACTIONS (10)
  - Feeling hot [Recovered/Resolved]
  - Influenza like illness [Recovered/Resolved]
  - Muscle twitching [Recovered/Resolved]
  - Insomnia [Unknown]
  - Anxiety [Not Recovered/Not Resolved]
  - Panic attack [Not Recovered/Not Resolved]
  - Pain in extremity [Not Recovered/Not Resolved]
  - Musculoskeletal pain [Not Recovered/Not Resolved]
  - Malaise [Recovered/Resolved]
  - Off label use [Unknown]

NARRATIVE: CASE EVENT DATE: 20250406
